FAERS Safety Report 11763054 (Version 1)
Quarter: 2015Q4

REPORT INFORMATION
  Report Type: Spontaneous
  Country: US (occurrence: US)
  Receive Date: 20151120
  Receipt Date: 20151120
  Transmission Date: 20160304
  Serious: No
  Sender: FDA-Public Use
  Company Number: US-ELI_LILLY_AND_COMPANY-US201212000403

PATIENT
  Age: 70 Year
  Sex: Female

DRUGS (3)
  1. FOSAMAX [Concomitant]
     Active Substance: ALENDRONATE SODIUM
  2. FORTEO [Suspect]
     Active Substance: TERIPARATIDE
     Indication: OSTEOPOROSIS
     Dosage: 20 UG, QD
     Route: 065
  3. FORTEO [Suspect]
     Active Substance: TERIPARATIDE
     Dosage: 20 UG, QD
     Route: 065
     Dates: end: 201212

REACTIONS (14)
  - Arthralgia [Recovered/Resolved]
  - Restlessness [Unknown]
  - Arthralgia [Unknown]
  - Drug administered at inappropriate site [Unknown]
  - Influenza like illness [Unknown]
  - Chest discomfort [Unknown]
  - Arthropathy [Unknown]
  - Nervousness [Recovered/Resolved]
  - Neck pain [Unknown]
  - Injection site pain [Recovered/Resolved]
  - Insomnia [Recovered/Resolved]
  - Back pain [Unknown]
  - Pain in extremity [Unknown]
  - Musculoskeletal pain [Unknown]

NARRATIVE: CASE EVENT DATE: 2012
